FAERS Safety Report 7342905-8 (Version None)
Quarter: 2011Q1

REPORT INFORMATION
  Report Type: 
  Country: None (occurrence: None)
  Receive Date: 20110310
  Receipt Date: 20110302
  Transmission Date: 20110831
  Serious: Yes (Life-Threatening)
  Sender: FDA-Public Use
  Company Number: DE-ELI_LILLY_AND_COMPANY-DE201103001300

PATIENT
  Sex: Male

DRUGS (1)
  1. PRASUGREL HYDROCHLORIDE [Suspect]
     Indication: ACUTE MYOCARDIAL INFARCTION
     Dosage: 30 MG, ONCE
     Route: 048
     Dates: start: 20110302, end: 20110302

REACTIONS (1)
  - TACHYCARDIA [None]
